FAERS Safety Report 8446838-5 (Version None)
Quarter: 2012Q2

REPORT INFORMATION
  Report Type: 
  Country: None (occurrence: None)
  Receive Date: 20120619
  Receipt Date: 20120608
  Transmission Date: 20120825
  Serious: Yes (Other)
  Sender: FDA-Public Use
  Company Number: JP-GE HEALTHCARE MEDICAL DIAGNOSTICS-OMPQ-NO-1205S-0532

PATIENT
  Sex: Female

DRUGS (2)
  1. OMNIPAQUE 140 [Suspect]
     Indication: JAUNDICE
     Route: 042
     Dates: start: 20111202, end: 20111202
  2. MEROPENEM [Concomitant]

REACTIONS (2)
  - INJECTION SITE SWELLING [None]
  - EXTRAVASATION [None]
